FAERS Safety Report 5984230-3 (Version None)
Quarter: 2008Q4

REPORT INFORMATION
  Report Type: 
  Country: None (occurrence: None)
  Receive Date: 20081208
  Receipt Date: 20080407
  Transmission Date: 20090506
  Serious: No
  Sender: FDA-Public Use
  Company Number: US-BRISTOL-MYERS SQUIBB COMPANY-14143390

PATIENT
  Age: 76 Year
  Sex: Female

DRUGS (1)
  1. QUESTRAN LIGHT [Suspect]
     Indication: DIARRHOEA
     Dosage: 1 DOSAGE FORM = 1/2-1 SCOOP DAILY.
     Route: 048
     Dates: start: 20080101

REACTIONS (1)
  - DRUG INEFFECTIVE [None]
